FAERS Safety Report 22037623 (Version 2)
Quarter: 2023Q1

REPORT INFORMATION
  Report Type: Spontaneous
  Country: CA (occurrence: None)
  Receive Date: 20230227
  Receipt Date: 20230324
  Transmission Date: 20230417
  Serious: Yes (Death, Hospitalization)
  Sender: FDA-Public Use
  Company Number: CA-ROCHE-3292704

PATIENT
  Age: 79 Year
  Sex: Male

DRUGS (1)
  1. RITUXIMAB [Suspect]
     Active Substance: RITUXIMAB
     Indication: Rheumatoid arthritis
     Route: 042

REACTIONS (3)
  - Death [Fatal]
  - COVID-19 [Fatal]
  - Interstitial lung disease [Fatal]
